FAERS Safety Report 7351949-1 (Version None)
Quarter: 2011Q1

REPORT INFORMATION
  Report Type: 
  Country: None (occurrence: None)
  Receive Date: 20110310
  Receipt Date: 20110310
  Transmission Date: 20110831
  Serious: Yes (Life-Threatening, Hospitalization)
  Sender: FDA-Public Use
  Company Number: None

PATIENT
  Sex: Female
  Weight: 86.1834 kg

DRUGS (1)
  1. AFRIN [Suspect]
     Dosage: AT 12 HOUR SPRAY. USE, EVERY 12 HR
     Dates: start: 20101205, end: 20101205

REACTIONS (5)
  - BLOOD PRESSURE INCREASED [None]
  - APPLICATION SITE PAIN [None]
  - HEADACHE [None]
  - EAR PAIN [None]
  - EPISTAXIS [None]
